FAERS Safety Report 9588780 (Version 1)
Quarter: 2013Q4

REPORT INFORMATION
  Report Type: Spontaneous
  Country: US (occurrence: US)
  Receive Date: 20131003
  Receipt Date: 20131003
  Transmission Date: 20140711
  Serious: No
  Sender: FDA-Public Use
  Company Number: US-AMGEN-USASP2012066300

PATIENT
  Age: 59 Year
  Sex: Male

DRUGS (3)
  1. ENBREL [Suspect]
     Indication: RHEUMATOID ARTHRITIS
     Dosage: 50 MG, QWK
     Dates: start: 20120123, end: 201203
  2. METHOTREXATE [Concomitant]
     Dosage: 25 MG, QWK
     Dates: start: 201012
  3. ARAVA [Concomitant]
     Dosage: 20 MG, QWK
     Dates: start: 201012

REACTIONS (1)
  - Drug ineffective [Not Recovered/Not Resolved]
